FAERS Safety Report 19533230 (Version 1)
Quarter: 2021Q3

REPORT INFORMATION
  Report Type: Spontaneous
  Country: US (occurrence: US)
  Receive Date: 20210713
  Receipt Date: 20210713
  Transmission Date: 20211014
  Serious: Yes (Other)
  Sender: FDA-Public Use
  Company Number: US-STRIDES ARCOLAB LIMITED-2021SP014320

PATIENT
  Age: 47 Year
  Sex: Male

DRUGS (3)
  1. RANITIDINE. [Suspect]
     Active Substance: RANITIDINE
     Indication: DYSPEPSIA
  2. RANITIDINE. [Suspect]
     Active Substance: RANITIDINE
     Dosage: UNK
     Route: 048
  3. RANITIDINE. [Suspect]
     Active Substance: RANITIDINE
     Indication: GASTROINTESTINAL ULCER

REACTIONS (4)
  - Hepatic artery aneurysm [Unknown]
  - Bladder cancer [Unknown]
  - Duodenal ulcer [Unknown]
  - Coeliac artery aneurysm [Unknown]

NARRATIVE: CASE EVENT DATE: 19930901
